FAERS Safety Report 18278933 (Version 4)
Quarter: 2022Q2

REPORT INFORMATION
  Report Type: Spontaneous
  Country: FR (occurrence: FR)
  Receive Date: 20200917
  Receipt Date: 20220513
  Transmission Date: 20220721
  Serious: Yes (Other)
  Sender: FDA-Public Use
  Company Number: None

PATIENT
  Age: 35 Year
  Sex: Female

DRUGS (7)
  1. INTRAROSA [Suspect]
     Active Substance: PRASTERONE
     Indication: Adrenal insufficiency
     Dosage: 6.5 MG / PESSARY
     Route: 065
  2. OXYCODONE HYDROCHLORIDE [Suspect]
     Active Substance: OXYCODONE HYDROCHLORIDE
     Indication: Pain
     Dosage: 60 MILLIGRAM
     Route: 048
  3. FLUDROCORTISONE [Suspect]
     Active Substance: FLUDROCORTISONE
     Indication: Adrenal insufficiency
     Dosage: UNKNOWN
     Route: 065
  4. FENTANYL [Suspect]
     Active Substance: FENTANYL
     Indication: Pain
     Dosage: 75 MG
     Route: 062
  5. PREDNISONE [Suspect]
     Active Substance: PREDNISONE
     Indication: Adrenal insufficiency
     Dosage: 2 MG IN THE MORNING, AND 3 MG IN THE EVENING, THEN 5 MG IN THE MORNING FOR 1 YEAR
     Route: 065
  6. HYDROCORTISONE [Suspect]
     Active Substance: HYDROCORTISONE
     Indication: Adrenal insufficiency
     Dosage: 10 MG IN THE MORNING, 5 MG AT 4 P.M.
     Route: 058
  7. HYDROCORTISONE [Suspect]
     Active Substance: HYDROCORTISONE
     Dosage: 10 MG IN THE MORNING, 5 MG AT 4 P.M.
     Route: 048

REACTIONS (8)
  - Ankylosing spondylitis [Unknown]
  - Drug ineffective [Unknown]
  - Arthralgia [Unknown]
  - Weight increased [Unknown]
  - Asthenia [Recovering/Resolving]
  - Dermatitis allergic [Recovering/Resolving]
  - Disturbance in attention [Unknown]
  - Off label use [Unknown]
